FAERS Safety Report 14127820 (Version 1)
Quarter: 2017Q4

REPORT INFORMATION
  Report Type: Spontaneous
  Country: US (occurrence: US)
  Receive Date: 20171026
  Receipt Date: 20171026
  Transmission Date: 20180321
  Serious: No
  Sender: FDA-Public Use
  Company Number: US-PFIZER INC-2017449978

PATIENT
  Age: 45 Year
  Sex: Female
  Weight: 91.71 kg

DRUGS (5)
  1. LYRICA [Suspect]
     Active Substance: PREGABALIN
     Indication: FIBROMYALGIA
     Dosage: 750 MG, DAILY
     Dates: start: 20170821
  2. EFFEXOR [Concomitant]
     Active Substance: VENLAFAXINE HYDROCHLORIDE
     Indication: FIBROMYALGIA
     Dosage: UNK
  3. LYRICA [Suspect]
     Active Substance: PREGABALIN
     Indication: MYALGIA
     Dosage: UNK (FOR 9 YEARS)
     Dates: start: 2008
  4. LYRICA [Suspect]
     Active Substance: PREGABALIN
     Dosage: 750 MG, DAILY
     Dates: start: 20171011
  5. LYRICA [Suspect]
     Active Substance: PREGABALIN
     Dosage: 750 MG, DAILY ((300 MG CAPSULE IN THE MORNING AND AT NIGHT SHE WAS TAKING ONE 300 MG CAPSULE AND ON)

REACTIONS (9)
  - Withdrawal syndrome [Unknown]
  - Dizziness [Not Recovered/Not Resolved]
  - Headache [Not Recovered/Not Resolved]
  - Arthralgia [Not Recovered/Not Resolved]
  - Condition aggravated [Not Recovered/Not Resolved]
  - Prescribed overdose [Unknown]
  - Weight decreased [Unknown]
  - Nausea [Not Recovered/Not Resolved]
  - Vomiting [Not Recovered/Not Resolved]

NARRATIVE: CASE EVENT DATE: 201708
